FAERS Safety Report 7518149-3 (Version None)
Quarter: 2011Q2

REPORT INFORMATION
  Report Type: 
  Country: None (occurrence: None)
  Receive Date: 20110512
  Receipt Date: 20110316
  Transmission Date: 20111010
  Serious: No
  Sender: FDA-Public Use
  Company Number: 1000019296

PATIENT
  Age: 65 Year
  Sex: Female

DRUGS (9)
  1. FENTANYL [Concomitant]
  2. NEURONTIN [Concomitant]
  3. TRAMADOL HCL [Concomitant]
  4. TRAZODONE (TRAZODONE) (TRAZODONE) [Concomitant]
  5. MIRALAX (MAROGOL) (MAROGOL) [Concomitant]
  6. SAVELLA [Suspect]
     Indication: FIBROMYALGIA
     Dosage: 12.5 MG (12.5 MG, 1 IN 1 D), ORAL, 25 MG (25 MG, 1 IN 1 D), ORAL
     Route: 048
     Dates: start: 20110216, end: 20110301
  7. SAVELLA [Suspect]
     Indication: FIBROMYALGIA
     Dosage: 12.5 MG (12.5 MG, 1 IN 1 D), ORAL, 25 MG (25 MG, 1 IN 1 D), ORAL
     Route: 048
     Dates: start: 20110302
  8. CLONAZEPAM [Concomitant]
  9. BUSPAR (BUSPIRONE HYDROCHLORIDE) (BUSPIRONE HYDROCHLORIDE) [Concomitant]

REACTIONS (3)
  - FLUSHING [None]
  - BLOOD PRESSURE INCREASED [None]
  - HEADACHE [None]
